FAERS Safety Report 13472222 (Version 3)
Quarter: 2017Q2

REPORT INFORMATION
  Report Type: Spontaneous
  Country: US (occurrence: US)
  Receive Date: 20170424
  Receipt Date: 20170427
  Transmission Date: 20170830
  Serious: Yes (Death, Hospitalization)
  Sender: FDA-Public Use
  Company Number: US-B.I. PHARMACEUTICALS,INC./RIDGEFIELD-2017-BI-023066

PATIENT
  Age: 93 Year
  Sex: Male

DRUGS (1)
  1. DULCOLAX (BISACODYL) [Suspect]
     Active Substance: BISACODYL
     Indication: CONSTIPATION
     Dosage: ONE VIA RECTUM;  FORM STRENGTH: 10 MG; FORMULATION: SUPPOSITORY? ADMINISTRATION CORRECT? YES ?ACTION
     Route: 054
     Dates: start: 20160721

REACTIONS (4)
  - Pruritus [Unknown]
  - Rash [Unknown]
  - Pain [Unknown]
  - Myocardial infarction [Fatal]

NARRATIVE: CASE EVENT DATE: 20160722
